FAERS Safety Report 6711998-0 (Version None)
Quarter: 2010Q2

REPORT INFORMATION
  Report Type: 
  Country: None (occurrence: None)
  Receive Date: 20100505
  Receipt Date: 20100430
  Transmission Date: 20101027
  Serious: Yes (Other)
  Sender: FDA-Public Use
  Company Number: US-ASTRAZENECA-2010SE16574

PATIENT
  Age: 17823 Day
  Sex: Female

DRUGS (3)
  1. SEROQUEL XR [Suspect]
     Indication: MAJOR DEPRESSION
     Route: 048
     Dates: start: 20100308, end: 20100317
  2. LEXAPRO [Concomitant]
     Indication: MAJOR DEPRESSION
     Route: 048
  3. XANAX [Concomitant]
     Indication: ANXIETY

REACTIONS (1)
  - MYALGIA [None]
